FAERS Safety Report 15453814 (Version 4)
Quarter: 2018Q4

REPORT INFORMATION
  Report Type: Spontaneous
  Country: US (occurrence: US)
  Receive Date: 20181001
  Receipt Date: 20181212
  Transmission Date: 20190204
  Serious: Yes (Hospitalization, Other)
  Sender: FDA-Public Use
  Company Number: US-ASTRAZENECA-2018SF24564

PATIENT
  Sex: Male

DRUGS (3)
  1. FASENRA [Suspect]
     Active Substance: BENRALIZUMAB
     Indication: ASTHMA
     Route: 058
     Dates: start: 20180417, end: 20180724
  2. FASENRA [Suspect]
     Active Substance: BENRALIZUMAB
     Indication: ASTHMA
     Route: 058
     Dates: start: 20180417, end: 20180724
  3. PREDNISONE. [Concomitant]
     Active Substance: PREDNISONE
     Dosage: 40.0MG UNKNOWN

REACTIONS (5)
  - Alveolitis allergic [Not Recovered/Not Resolved]
  - Interstitial lung disease [Unknown]
  - Malaise [Unknown]
  - Acute kidney injury [Recovered/Resolved]
  - Pulmonary sarcoidosis [Unknown]

NARRATIVE: CASE EVENT DATE: 201808
